FAERS Safety Report 8815811 (Version 1)
Quarter: 2012Q4

REPORT INFORMATION
  Report Type: 
  Country: DK (occurrence: DK)
  Receive Date: 20120928
  Receipt Date: 20120928
  Transmission Date: 20130627
  Serious: Yes (Other)
  Sender: FDA-Public Use
  Company Number: DK-VERTEX PHARMACEUTICAL INC.-2012-021886

PATIENT
  Age: 66 Year
  Sex: Male

DRUGS (4)
  1. INCIVO [Suspect]
     Indication: HEPATITIS C
     Dosage: UNK
     Route: 048
  2. PEGASYS [Suspect]
     Indication: HEPATITIS C
     Dosage: UNK
     Route: 065
  3. PEGINTRON [Suspect]
     Indication: HEPATITIS C
     Route: 065
  4. RIBAVIRIN [Suspect]
     Indication: HEPATITIS C
     Route: 065

REACTIONS (1)
  - Depression [Not Recovered/Not Resolved]
